FAERS Safety Report 4803862-9 (Version None)
Quarter: 2005Q4

REPORT INFORMATION
  Report Type: 
  Country: None (occurrence: None)
  Receive Date: 20051014
  Receipt Date: 20051003
  Transmission Date: 20060501
  Serious: Yes (Death)
  Sender: FDA-Public Use
  Company Number: 218438

PATIENT
  Age: 79 Year
  Sex: Male
  Weight: 46 kg

DRUGS (5)
  1. RITUXAN(RITUXIMAB) CONC FOR SOLUTION FOR INFUSION [Suspect]
     Indication: NON-HODGKIN'S LYMPHOMA
     Dosage: 532 MG, INTRAVENOUS
     Route: 042
     Dates: start: 20040813, end: 20041006
  2. ETOPOSIDE [Concomitant]
  3. POLARAMINE [Concomitant]
  4. LOXONIN (LOXOPROFEN SODIUM) [Concomitant]
  5. ETOPOSIDE [Concomitant]

REACTIONS (5)
  - CONVULSION [None]
  - FEBRILE NEUTROPENIA [None]
  - HAEMOGLOBIN DECREASED [None]
  - PLATELET COUNT DECREASED [None]
  - WHITE BLOOD CELL COUNT DECREASED [None]
